FAERS Safety Report 5431463-0 (Version None)
Quarter: 2007Q3

REPORT INFORMATION
  Report Type: 
  Country: None (occurrence: None)
  Receive Date: 20070830
  Receipt Date: 20070810
  Transmission Date: 20080115
  Serious: No
  Sender: FDA-Public Use
  Company Number: A0661018A

PATIENT
  Age: 49 Year
  Sex: Female

DRUGS (7)
  1. WELLBUTRIN XL [Suspect]
     Indication: DEPRESSION
     Dosage: 150MG PER DAY
     Route: 048
     Dates: end: 20070629
  2. FOSAMAX D [Concomitant]
     Indication: OSTEOPOROSIS
     Route: 048
  3. ZYRTEC [Concomitant]
  4. XANAX [Concomitant]
     Indication: ANXIETY
     Route: 048
  5. NEXIUM [Concomitant]
  6. ZANTAC 150 [Concomitant]
  7. ESTROGEN [Concomitant]
     Indication: HORMONE LEVEL ABNORMAL

REACTIONS (5)
  - FEELING JITTERY [None]
  - INSOMNIA [None]
  - MEDICATION ERROR [None]
  - NERVOUSNESS [None]
  - VISION BLURRED [None]
